FAERS Safety Report 17469306 (Version 2)
Quarter: 2020Q1

REPORT INFORMATION
  Report Type: Spontaneous
  Country: FR (occurrence: FR)
  Receive Date: 20200227
  Receipt Date: 20200303
  Transmission Date: 20200409
  Serious: Yes (Other)
  Sender: FDA-Public Use
  Company Number: FR-ASTRAZENECA-2020SE26873

PATIENT
  Age: 17419 Day
  Sex: Female

DRUGS (1)
  1. FASENRA [Suspect]
     Active Substance: BENRALIZUMAB
     Indication: ASTHMA
     Dosage: 30.0MG UNKNOWN
     Route: 058
     Dates: start: 20190915

REACTIONS (8)
  - Hypertension [Unknown]
  - Vision blurred [Unknown]
  - Paraesthesia [Unknown]
  - Localised oedema [Unknown]
  - Face oedema [Unknown]
  - Tachycardia [Unknown]
  - Visual impairment [Unknown]
  - Arthralgia [Unknown]

NARRATIVE: CASE EVENT DATE: 20200218
